FAERS Safety Report 7999358-6 (Version None)
Quarter: 2011Q4

REPORT INFORMATION
  Report Type: 
  Country: None (occurrence: None)
  Receive Date: 20111221
  Receipt Date: 20070123
  Transmission Date: 20120403
  Serious: Yes (Other)
  Sender: FDA-Public Use
  Company Number: PHHY2007BR011514

PATIENT
  Age: 58 Year
  Sex: Female

DRUGS (2)
  1. EXFORGE [Suspect]
     Dosage: 1 DF, 160/5 MG
  2. DIOVAN HCT [Concomitant]
     Dosage: 1 DF, 160/12.5 MG

REACTIONS (3)
  - HYPERTENSION [None]
  - NAUSEA [None]
  - NECK PAIN [None]
